FAERS Safety Report 25111118 (Version 2)
Quarter: 2025Q2

REPORT INFORMATION
  Report Type: Spontaneous
  Country: IT (occurrence: IT)
  Receive Date: 20250324
  Receipt Date: 20250408
  Transmission Date: 20250716
  Serious: Yes (Other)
  Sender: CIPLA
  Company Number: IT-MINISAL02-1028997

PATIENT

DRUGS (5)
  1. RIVAROXABAN [Suspect]
     Active Substance: RIVAROXABAN
     Indication: Atrial fibrillation
     Dosage: 20 MILLIGRAM, QD (FILM-COATED TABLET); 28X1 TABLETS 20 MG: 1 TABLET/DAY
     Route: 048
     Dates: start: 20250225, end: 20250303
  2. ESOMEPRAZOLE MAGNESIUM [Concomitant]
     Active Substance: ESOMEPRAZOLE MAGNESIUM
     Indication: Product used for unknown indication
     Route: 048
  3. TENORMIN [Concomitant]
     Active Substance: ATENOLOL
     Indication: Hypertension
     Route: 048
  4. AMLODIPINE BESYLATE\OLMESARTAN MEDOXOMIL [Concomitant]
     Active Substance: AMLODIPINE BESYLATE\OLMESARTAN MEDOXOMIL
     Indication: Hypertension
     Route: 048
  5. EZATEROS [Concomitant]
     Indication: Type IIa hyperlipidaemia
     Route: 048

REACTIONS (5)
  - Vertigo [Recovered/Resolved]
  - Tremor [Recovered/Resolved]
  - Nausea [Recovered/Resolved]
  - Vomiting [Recovered/Resolved]
  - Presyncope [Recovered/Resolved]

NARRATIVE: CASE EVENT DATE: 20250301
